FAERS Safety Report 21464584 (Version 1)
Quarter: 2022Q4

REPORT INFORMATION
  Report Type: Spontaneous
  Country: US (occurrence: US)
  Receive Date: 20221017
  Receipt Date: 20221017
  Transmission Date: 20230112
  Serious: Yes (Other)
  Sender: FDA-Public Use
  Company Number: US-BAYER-2022A138532

PATIENT

DRUGS (1)
  1. AFRIN ORIGINAL NASAL [Suspect]
     Active Substance: OXYMETAZOLINE HYDROCHLORIDE
     Indication: Nasal congestion
     Dosage: UNK

REACTIONS (6)
  - Drug dependence [None]
  - Therapeutic response shortened [None]
  - Paranasal sinus discomfort [Unknown]
  - Nasal discomfort [Unknown]
  - Sinus pain [None]
  - Rebound nasal congestion [None]
